FAERS Safety Report 4267138-3 (Version None)
Quarter: 2004Q1

REPORT INFORMATION
  Report Type: 
  Country: None (occurrence: None)
  Receive Date: 20040107
  Receipt Date: 20031223
  Transmission Date: 20041129
  Serious: Yes (Hospitalization)
  Sender: FDA-Public Use
  Company Number: A02200303516

PATIENT
  Age: 45 Year
  Sex: Male

DRUGS (11)
  1. STILNOX - (ZOLPIDEM) [Suspect]
     Dosage: 10 MG OD, ORAL
     Route: 048
     Dates: start: 20030921, end: 20030921
  2. STILNOX - (ZOLPIDEM) [Suspect]
     Dosage: 10 MG OD, ORAL
     Route: 048
     Dates: start: 20030923, end: 20030923
  3. STILNOX - (ZOLPIDEM) [Suspect]
     Dosage: 10 MG OD, ORAL
     Route: 048
     Dates: start: 20031001, end: 20031005
  4. ZOVIRAX [Suspect]
     Dosage: 750 MG TID /750 MG BID
     Dates: start: 20030919, end: 20030924
  5. ZOVIRAX [Suspect]
     Dosage: 750 MG TID /750 MG BID
     Dates: start: 20030925, end: 20030928
  6. ZOVIRAX [Suspect]
     Dosage: 750 MG TID /750 MG BID
     Dates: start: 20030925, end: 20031005
  7. IMOVANE (ZOPICLONE) [Concomitant]
  8. TIAPRIDAL (TIAPRIDE) [Concomitant]
  9. ESKAZOLE (ALBENDAZOLE) [Concomitant]
  10. SOLU-MEDROL [Concomitant]
  11. PREDNISONE [Concomitant]

REACTIONS (2)
  - BLOOD CREATININE INCREASED [None]
  - HEPATOCELLULAR DAMAGE [None]
